FAERS Safety Report 7416286-5 (Version None)
Quarter: 2011Q2

REPORT INFORMATION
  Report Type: 
  Country: None (occurrence: None)
  Receive Date: 20110414
  Receipt Date: 20110411
  Transmission Date: 20111010
  Serious: Yes (Death, Other)
  Sender: FDA-Public Use
  Company Number: US-ELI_LILLY_AND_COMPANY-US201102004168

PATIENT
  Sex: Male
  Weight: 69.388 kg

DRUGS (7)
  1. DECADRON [Concomitant]
     Dosage: 4 MG, UNK
  2. CARBOPLATIN [Concomitant]
     Dosage: 600 MG, SINGLE
     Route: 042
     Dates: start: 20110110, end: 20110110
  3. COMPAZINE [Concomitant]
     Dosage: 10 MG, EVERY 6 HRS
     Route: 048
  4. IBUPROFEN [Concomitant]
     Dosage: 200 MG, UNK
  5. ALIMTA [Suspect]
     Indication: LUNG CANCER METASTATIC
     Dosage: 900 MG, SINGLE
     Route: 042
     Dates: start: 20110110
  6. REGLAN [Concomitant]
     Dosage: 10 MG, EVERY 6 HRS
     Route: 048
  7. FOLIC ACID [Concomitant]
     Dosage: 1 MG, QD

REACTIONS (9)
  - ABDOMINAL PAIN UPPER [None]
  - VITAMIN B12 INCREASED [None]
  - ABDOMINAL DISTENSION [None]
  - GENERAL PHYSICAL HEALTH DETERIORATION [None]
  - PANCYTOPENIA [None]
  - NEOPLASM MALIGNANT [None]
  - LUNG CANCER METASTATIC [None]
  - BACK PAIN [None]
  - SWELLING [None]
